FAERS Safety Report 8469292-6 (Version None)
Quarter: 2012Q2

REPORT INFORMATION
  Report Type: 
  Country: None (occurrence: None)
  Receive Date: 20120626
  Receipt Date: 20120618
  Transmission Date: 20120825
  Serious: Yes (Hospitalization)
  Sender: FDA-Public Use
  Company Number: CH-ELI_LILLY_AND_COMPANY-CH201205008262

PATIENT
  Sex: Female
  Weight: 65 kg

DRUGS (4)
  1. ASPIRIN [Concomitant]
     Dosage: 100 MG, QD
  2. ASPIRIN [Concomitant]
     Dosage: LOADING DOSE (300-500MG)
  3. EFFIENT [Suspect]
     Dosage: 10 MG, QD
  4. EFFIENT [Suspect]
     Indication: PERCUTANEOUS CORONARY INTERVENTION
     Dosage: 60 MG, UNK
     Dates: start: 20120416

REACTIONS (4)
  - HYPOTENSION [None]
  - GASTRIC ULCER HAEMORRHAGE [None]
  - SYNCOPE [None]
  - ANAEMIA [None]
